FAERS Safety Report 15340480 (Version 1)
Quarter: 2018Q3

REPORT INFORMATION
  Report Type: Spontaneous
  Country: US (occurrence: US)
  Receive Date: 20180831
  Receipt Date: 20180831
  Transmission Date: 20181010
  Serious: Yes (Other)
  Sender: FDA-Public Use
  Company Number: US-GLAXOSMITHKLINE-US2018155659

PATIENT
  Sex: Male

DRUGS (1)
  1. SENSODYNE PRONAMEL GENTLE WHITENING [Suspect]
     Active Substance: POTASSIUM NITRATE\SODIUM FLUORIDE
     Indication: PRODUCT USED FOR UNKNOWN INDICATION
     Dosage: UNK

REACTIONS (6)
  - Vomiting [Unknown]
  - Pharyngeal oedema [Unknown]
  - Anaphylactic reaction [Unknown]
  - Cough [Unknown]
  - Oral pain [Unknown]
  - Dyspnoea [Unknown]
